FAERS Safety Report 7034973-8 (Version None)
Quarter: 2010Q4

REPORT INFORMATION
  Report Type: 
  Country: None (occurrence: None)
  Receive Date: 20101008
  Receipt Date: 20101001
  Transmission Date: 20110411
  Serious: Yes (Hospitalization)
  Sender: FDA-Public Use
  Company Number: JP-ROCHE-731513

PATIENT
  Age: 63 Year
  Sex: Female
  Weight: 55.2 kg

DRUGS (9)
  1. PEGASYS [Suspect]
     Indication: CHRONIC HEPATITIS
     Dosage: DOSAGE IS UNCERTAIN
     Route: 058
  2. ALOSENN [Concomitant]
     Route: 048
     Dates: start: 20100911, end: 20100916
  3. ATENOLOL [Concomitant]
     Route: 048
     Dates: start: 20100911, end: 20100916
  4. ALLOPURINOL [Concomitant]
     Route: 048
     Dates: start: 20100911, end: 20100916
  5. LANSOPRAZOLE [Concomitant]
     Dosage: REPORTED AS LANSOPRAZOLE-OD
     Route: 048
     Dates: start: 20100911, end: 20100916
  6. RENIVEZE [Concomitant]
     Route: 048
     Dates: start: 20100911, end: 20100916
  7. FUROSEMIDE [Concomitant]
     Route: 048
     Dates: start: 20100911, end: 20100916
  8. CALFINA [Concomitant]
     Route: 048
     Dates: start: 20100911, end: 20100916
  9. LOXOPROFEN [Concomitant]
     Dosage: TAKEN AS NEEDED
     Route: 048
     Dates: start: 20100205, end: 20100430

REACTIONS (1)
  - PARKINSONISM [None]
